FAERS Safety Report 7138892-8 (Version None)
Quarter: 2010Q4

REPORT INFORMATION
  Report Type: 
  Country: None (occurrence: None)
  Receive Date: 20101206
  Receipt Date: 20101126
  Transmission Date: 20110411
  Serious: Yes (Hospitalization)
  Sender: FDA-Public Use
  Company Number: US-ABBOTT-10P-163-0664178-00

PATIENT
  Sex: Male
  Weight: 173.43 kg

DRUGS (4)
  1. HUMIRA [Suspect]
     Indication: CROHN'S DISEASE
     Dates: start: 20100626
  2. BLOOD PRESSURE MEDICATION [Concomitant]
     Indication: PRODUCT USED FOR UNKNOWN INDICATION
  3. OXYGEN [Concomitant]
     Indication: RESPIRATORY DISORDER
     Dates: end: 20101101
  4. OXYGEN [Concomitant]
     Dates: start: 20101101

REACTIONS (6)
  - CELLULITIS [None]
  - COUGH [None]
  - GAIT DISTURBANCE [None]
  - OSTEOARTHRITIS [None]
  - OXYGEN SATURATION DECREASED [None]
  - RESPIRATORY TRACT CONGESTION [None]
